FAERS Safety Report 5036689-6 (Version None)
Quarter: 2006Q2

REPORT INFORMATION
  Report Type: 
  Country: None (occurrence: None)
  Receive Date: 20060628
  Receipt Date: 20060621
  Transmission Date: 20061013
  Serious: Yes (Other)
  Sender: FDA-Public Use
  Company Number: US-ABBOTT-06P-163-0336483-00

PATIENT
  Sex: Female

DRUGS (2)
  1. DEPAKOTE ER [Suspect]
     Indication: EATING DISORDER
     Route: 048
     Dates: start: 20060201
  2. DEPAKOTE ER [Suspect]
     Indication: DEPRESSION

REACTIONS (3)
  - ALOPECIA [None]
  - CONVULSION [None]
  - THROMBOCYTOPENIA [None]
